FAERS Safety Report 7301847-4 (Version None)
Quarter: 2011Q1

REPORT INFORMATION
  Report Type: 
  Country: None (occurrence: None)
  Receive Date: 20110218
  Receipt Date: 20110208
  Transmission Date: 20110831
  Serious: Yes (Other)
  Sender: FDA-Public Use
  Company Number: GB-SANOFI-AVENTIS-2011SA008502

PATIENT
  Age: 73 Year
  Sex: Female

DRUGS (5)
  1. BUMETANIDE [Concomitant]
     Route: 048
     Dates: start: 20101208
  2. MULTAQ [Suspect]
     Indication: PROPHYLAXIS
     Route: 048
     Dates: start: 20101211, end: 20101213
  3. CANDESARTAN [Concomitant]
     Route: 048
     Dates: start: 20091027
  4. WARFARIN [Concomitant]
     Route: 048
     Dates: start: 20091029
  5. BISOPROLOL [Concomitant]
     Route: 048
     Dates: start: 20091027

REACTIONS (3)
  - CHOLESTATIC LIVER INJURY [None]
  - LIVER FUNCTION TEST ABNORMAL [None]
  - OFF LABEL USE [None]
